FAERS Safety Report 9541883 (Version 1)
Quarter: 2013Q3

REPORT INFORMATION
  Report Type: Spontaneous
  Country: IT (occurrence: None)
  Receive Date: 20130918
  Receipt Date: 20130918
  Transmission Date: 20140515
  Serious: Yes (Hospitalization)
  Sender: FDA-Public Use
  Company Number: AUR-APL-2013-07685

PATIENT
  Age: 60 Year
  Sex: Male

DRUGS (5)
  1. AMOXICILLIN [Suspect]
     Indication: TRACHEITIS
     Route: 048
     Dates: start: 20130405, end: 20130405
  2. LOBIVON (NEBIVOLOL HYDROCHLORIDE) [Concomitant]
  3. ACCURETIC (GEZOR) [Concomitant]
  4. CARDURA (DOXAZOSIN MESILATE) [Concomitant]
  5. OLPREZIDE (BENICAR HCT) [Concomitant]

REACTIONS (4)
  - Bronchospasm [None]
  - Generalised erythema [None]
  - Eyelid oedema [None]
  - Blood pressure increased [None]
